FAERS Safety Report 4669132-7 (Version None)
Quarter: 2005Q2

REPORT INFORMATION
  Report Type: 
  Country: None (occurrence: None)
  Receive Date: 20050519
  Receipt Date: 20050510
  Transmission Date: 20051028
  Serious: Yes (Hospitalization)
  Sender: FDA-Public Use
  Company Number: 2005-05-0687

PATIENT
  Age: 38 Year
  Sex: Male
  Weight: 60 kg

DRUGS (1)
  1. INTRON A [Suspect]
     Indication: CHRONIC MYELOID LEUKAEMIA
     Dosage: 10 MIU DAILY INTRAVENOUS
     Route: 042
     Dates: start: 20020709, end: 20020806

REACTIONS (1)
  - ASEPTIC NECROSIS BONE [None]
